FAERS Safety Report 20618349 (Version 9)
Quarter: 2023Q2

REPORT INFORMATION
  Report Type: Report from Study
  Country: KR (occurrence: None)
  Receive Date: 20220321
  Receipt Date: 20230412
  Transmission Date: 20230722
  Serious: Yes (Hospitalization)
  Sender: FDA-Public Use
  Company Number: KR-ROCHE-3051911

PATIENT
  Age: 56 Year
  Sex: Male
  Weight: 74.75 kg

DRUGS (28)
  1. TIRAGOLUMAB [Suspect]
     Active Substance: TIRAGOLUMAB
     Indication: Lung cancer metastatic
     Dosage: MOST RECENT DOSE OF STUDY DRUG PRIOR TO SAE: 24/FEB/2022
     Route: 042
     Dates: start: 20210929
  2. ATEZOLIZUMAB [Suspect]
     Active Substance: ATEZOLIZUMAB
     Indication: Lung cancer metastatic
     Dosage: MOST RECENT DOSE OF STUDY DRUG PRIOR TO SAE: 24/FEB/2022
     Route: 041
     Dates: start: 20210929
  3. ATEZOLIZUMAB [Suspect]
     Active Substance: ATEZOLIZUMAB
     Indication: Lung cancer metastatic
     Dosage: MOST RECENT DOSE OF STUDY DRUG PRIOR TO SAR 23/FEB/2022
     Route: 041
     Dates: start: 20210929
  4. CARBOPLATIN [Suspect]
     Active Substance: CARBOPLATIN
     Indication: Lung cancer metastatic
     Dosage: MOST RECENT DOSE OF STUDY DRUG PRIOR TO SAE: 02/DEC/2021 (630 MG)
     Route: 042
     Dates: start: 20210929
  5. PEMETREXED [Suspect]
     Active Substance: PEMETREXED
     Indication: Lung cancer metastatic
     Dosage: MOST RECENT DOSE OF STUDY DRUG PRIOR TO SAE: 24/FEB/2022 (990 MG)
     Route: 042
     Dates: start: 20210929
  6. FOLIC ACID [Concomitant]
     Active Substance: FOLIC ACID
     Route: 048
     Dates: start: 20210923, end: 20220616
  7. GASTER (SOUTH KOREA) [Concomitant]
     Route: 048
     Dates: start: 20210928, end: 20220615
  8. ACTINAMIDE [Concomitant]
     Dosage: 1
     Route: 030
     Dates: start: 20210929, end: 20220407
  9. NUCYNTA [Concomitant]
     Active Substance: TAPENTADOL HYDROCHLORIDE
     Indication: Cancer pain
     Route: 048
     Dates: start: 20211223, end: 20220427
  10. VIMOVO [Concomitant]
     Active Substance: ESOMEPRAZOLE MAGNESIUM\NAPROXEN
     Indication: Cancer pain
     Dosage: 500/20MG
     Route: 048
     Dates: start: 20220203, end: 20220427
  11. TARGIN PR [Concomitant]
     Indication: Cancer pain
     Route: 048
     Dates: start: 20220407, end: 20220502
  12. TARGIN PR [Concomitant]
     Route: 048
     Dates: start: 20220503
  13. ACECLOFENAC [Concomitant]
     Active Substance: ACECLOFENAC
     Indication: Cancer pain
     Route: 048
     Dates: start: 20220314, end: 20220316
  14. X PAIN TABLETS [Concomitant]
     Indication: Cancer pain
     Dosage: STRENGTH 325/37.5MG
     Route: 048
     Dates: start: 20220314, end: 20220316
  15. NEXIUM [Concomitant]
     Active Substance: ESOMEPRAZOLE MAGNESIUM
     Route: 048
     Dates: start: 20220314, end: 20220316
  16. MEPERIDINE HYDROCHLORIDE [Concomitant]
     Active Substance: MEPERIDINE HYDROCHLORIDE
     Indication: Cancer pain
     Route: 030
     Dates: start: 20220314, end: 20220314
  17. MEPERIDINE HYDROCHLORIDE [Concomitant]
     Active Substance: MEPERIDINE HYDROCHLORIDE
     Route: 030
     Dates: start: 20220328, end: 20220328
  18. DEXAMETHASONE [Concomitant]
     Active Substance: DEXAMETHASONE
     Route: 048
     Dates: start: 20210928, end: 20220615
  19. DICLOFENAC SODIUM [Concomitant]
     Active Substance: DICLOFENAC SODIUM
     Route: 030
     Dates: start: 20220616
  20. NEOXIA [Concomitant]
     Route: 048
     Dates: start: 20220609
  21. MORPHINE HYDROCHLORIDE [Concomitant]
     Active Substance: MORPHINE HYDROCHLORIDE
     Indication: Cancer pain
     Route: 042
     Dates: start: 20220428, end: 20220428
  22. TAZOPERAN [Concomitant]
     Route: 042
     Dates: start: 20220428, end: 20220428
  23. HUMULIN R [Concomitant]
     Active Substance: INSULIN HUMAN
     Route: 058
     Dates: start: 20220428, end: 20220428
  24. GEMCITABINE HYDROCHLORIDE [Concomitant]
     Active Substance: GEMCITABINE HYDROCHLORIDE
     Dates: start: 20220616, end: 20221206
  25. NAVELBINE [Concomitant]
     Active Substance: VINORELBINE TARTRATE
     Dates: start: 20220616, end: 20221206
  26. IRINOTECAN [Concomitant]
     Active Substance: IRINOTECAN
     Dates: start: 20220616, end: 20221206
  27. CISPLATIN [Concomitant]
     Active Substance: CISPLATIN
     Dates: start: 20220616, end: 20221206
  28. DITAXEL [Concomitant]

REACTIONS (1)
  - Pleural effusion [Recovering/Resolving]

NARRATIVE: CASE EVENT DATE: 20220203
